FAERS Safety Report 23402521 (Version 4)
Quarter: 2024Q1

REPORT INFORMATION
  Report Type: Spontaneous
  Country: US (occurrence: US)
  Receive Date: 20240115
  Receipt Date: 20240229
  Transmission Date: 20240409
  Serious: No
  Sender: FDA-Public Use
  Company Number: US-AMGEN-USASP2024006497

PATIENT
  Age: 58 Year
  Sex: Male

DRUGS (1)
  1. REPATHA [Suspect]
     Active Substance: EVOLOCUMAB
     Indication: Blood cholesterol abnormal
     Dosage: 420 MILLIGRAM, QMO
     Route: 058

REACTIONS (5)
  - Drug dose omission by device [Unknown]
  - Injection site pain [Unknown]
  - Device difficult to use [Unknown]
  - Nervousness [Unknown]
  - Product preparation error [Unknown]

NARRATIVE: CASE EVENT DATE: 20240111
